FAERS Safety Report 19642980 (Version 4)
Quarter: 2021Q4

REPORT INFORMATION
  Report Type: Report from Study
  Country: CA (occurrence: CA)
  Receive Date: 20210731
  Receipt Date: 20211101
  Transmission Date: 20220304
  Serious: Yes (Hospitalization)
  Sender: FDA-Public Use
  Company Number: NVSC2021CA166042

PATIENT
  Sex: Female

DRUGS (3)
  1. ELTROMBOPAG OLAMINE [Suspect]
     Active Substance: ELTROMBOPAG OLAMINE
     Indication: Aplastic anaemia
     Dosage: 1 DF, QD (STRENGTH: 50 MG/ TAB)
     Route: 048
     Dates: start: 20210704
  2. ELTROMBOPAG OLAMINE [Suspect]
     Active Substance: ELTROMBOPAG OLAMINE
     Dosage: 150 MG, QD (STRENGTH: 75 MG/ TAB)
     Route: 048
     Dates: start: 20210715
  3. ELTROMBOPAG OLAMINE [Suspect]
     Active Substance: ELTROMBOPAG OLAMINE
     Dosage: 50 MG(STRENGTH:50 MG )
     Route: 048
     Dates: start: 20210719

REACTIONS (7)
  - Tremor [Recovering/Resolving]
  - Gait disturbance [Recovering/Resolving]
  - Asthenia [Recovering/Resolving]
  - Fatigue [Recovering/Resolving]
  - Feeling hot [Unknown]
  - Insomnia [Recovering/Resolving]
  - Pruritus [Unknown]
